FAERS Safety Report 21766360 (Version 1)
Quarter: 2022Q4

REPORT INFORMATION
  Report Type: Spontaneous
  Country: US (occurrence: US)
  Receive Date: 20221222
  Receipt Date: 20221222
  Transmission Date: 20230113
  Serious: No
  Sender: FDA-Public Use
  Company Number: US-PFIZER INC-202201380439

PATIENT
  Age: 79 Year
  Sex: Male
  Weight: 99.79 kg

DRUGS (1)
  1. PAXLOVID [Suspect]
     Active Substance: NIRMATRELVIR\RITONAVIR
     Indication: COVID-19 treatment
     Dosage: ONE NIRMATRELVIR TABLET 150MG AND ONE RITONAVIR TABLET 100MG, TAKEN IN MORNING AND AT NIGHT
     Dates: start: 20221213

REACTIONS (4)
  - Abdominal pain upper [Not Recovered/Not Resolved]
  - Erythema [Not Recovered/Not Resolved]
  - Insomnia [Unknown]
  - Product prescribing error [Unknown]

NARRATIVE: CASE EVENT DATE: 20221213
